FAERS Safety Report 19057262 (Version 4)
Quarter: 2021Q2

REPORT INFORMATION
  Report Type: Spontaneous
  Country: US (occurrence: US)
  Receive Date: 20210324
  Receipt Date: 20210608
  Transmission Date: 20210717
  Serious: Yes (Other)
  Sender: FDA-Public Use
  Company Number: US-SA-2021SA088217

PATIENT
  Sex: Female

DRUGS (1)
  1. LANTUS [Suspect]
     Active Substance: INSULIN GLARGINE
     Indication: TYPE 2 DIABETES MELLITUS
     Dosage: 10?15 UNITS DAILY
     Route: 065

REACTIONS (6)
  - Gait disturbance [Unknown]
  - Cerebrovascular accident [Unknown]
  - Brachial plexus injury [Unknown]
  - Monoparesis [Unknown]
  - Movement disorder [Recovering/Resolving]
  - Pain in extremity [Unknown]
